FAERS Safety Report 18476941 (Version 1)
Quarter: 2020Q4

REPORT INFORMATION
  Report Type: Spontaneous
  Country: FR (occurrence: FR)
  Receive Date: 20201107
  Receipt Date: 20201107
  Transmission Date: 20210114
  Serious: Yes (Life-Threatening)
  Sender: FDA-Public Use
  Company Number: NVSC2020FR297162

PATIENT
  Age: 36 Year
  Sex: Female
  Weight: 60.9 kg

DRUGS (1)
  1. PARACETAMOL [Suspect]
     Active Substance: ACETAMINOPHEN
     Indication: TOXICITY TO VARIOUS AGENTS
     Dosage: 40 G, TOTAL
     Route: 048
     Dates: start: 20200919, end: 20200919

REACTIONS (3)
  - Hepatocellular injury [Recovering/Resolving]
  - Acute hepatic failure [Recovering/Resolving]
  - Vomiting [Recovered/Resolved]

NARRATIVE: CASE EVENT DATE: 20200919
